FAERS Safety Report 9198837 (Version 5)
Quarter: 2014Q2

REPORT INFORMATION
  Report Type: Spontaneous
  Country: US (occurrence: US)
  Receive Date: 20130329
  Receipt Date: 20140605
  Transmission Date: 20141212
  Serious: Yes (Hospitalization, Other)
  Sender: FDA-Public Use
  Company Number: US-009507513-1303USA012671

PATIENT
  Sex: Female
  Weight: 77.98 kg

DRUGS (5)
  1. FOSAMAX [Suspect]
     Indication: OSTEOPENIA
     Dosage: UNK
     Route: 048
     Dates: start: 1999, end: 2007
  2. FOSAMAX [Suspect]
     Dosage: 70 MG, QW
     Route: 048
     Dates: start: 20041020
  3. FOSAMAX PLUS D [Suspect]
     Indication: OSTEOPENIA
     Dosage: 70 MG, UNK
     Route: 048
     Dates: start: 2007, end: 2013
  4. ALENDRONATE SODIUM [Suspect]
     Dosage: 70 MG, UNK
  5. PREMARIN [Concomitant]
     Indication: MENOPAUSE
     Dosage: UNK
     Dates: start: 1988, end: 2007

REACTIONS (29)
  - Intramedullary rod insertion [Unknown]
  - Bone graft [Unknown]
  - Bone graft [Unknown]
  - Intramedullary rod insertion [Unknown]
  - Radius fracture [Unknown]
  - Open reduction of fracture [Unknown]
  - Fracture nonunion [Unknown]
  - Removal of internal fixation [Unknown]
  - Bone graft [Unknown]
  - Fracture nonunion [Unknown]
  - Femur fracture [Unknown]
  - Open reduction of fracture [Unknown]
  - Device failure [Unknown]
  - Femur fracture [Recovering/Resolving]
  - Fracture nonunion [Unknown]
  - Medical device removal [Unknown]
  - Carpal tunnel decompression [Unknown]
  - Carpal tunnel decompression [Unknown]
  - Bone disorder [Unknown]
  - Depression [Unknown]
  - Anxiety [Unknown]
  - Osteoporosis [Unknown]
  - Blood cholesterol increased [Unknown]
  - Bundle branch block left [Unknown]
  - Osteoarthritis [Unknown]
  - Hysterectomy [Unknown]
  - Nasopharyngitis [Unknown]
  - Device breakage [Unknown]
  - Device failure [Unknown]
